FAERS Safety Report 7659619-7 (Version None)
Quarter: 2011Q3

REPORT INFORMATION
  Report Type: 
  Country: None (occurrence: None)
  Receive Date: 20110805
  Receipt Date: 20110728
  Transmission Date: 20111222
  Serious: Yes (Hospitalization)
  Sender: FDA-Public Use
  Company Number: FR-MERCK-1108FRA00012

PATIENT
  Age: 84 Year
  Sex: Male
  Weight: 74 kg

DRUGS (12)
  1. JANUVIA [Suspect]
     Indication: TYPE 2 DIABETES MELLITUS
     Route: 048
     Dates: end: 20110307
  2. ALENDRONATE SODIUM AND CHOLECALCIFEROL [Concomitant]
     Route: 048
  3. DORZOLAMIDE HYDROCHLORIDE [Concomitant]
     Route: 047
  4. FLUVASTATIN SODIUM [Concomitant]
     Route: 048
  5. IRBESARTAN [Concomitant]
     Route: 048
  6. LEUCOVORIN CALCIUM [Concomitant]
     Route: 048
  7. CLOPIDOGREL BISULFATE [Concomitant]
     Route: 048
  8. ZOPICLONE [Concomitant]
     Route: 048
  9. ACETAMINOPHEN [Concomitant]
     Route: 048
  10. VENLAFAXINE HYDROCHLORIDE [Concomitant]
     Route: 048
  11. TAMSULOSIN HYDROCHLORIDE [Concomitant]
     Route: 048
  12. GLYBURIDE [Suspect]
     Indication: TYPE 2 DIABETES MELLITUS
     Route: 048
     Dates: end: 20110307

REACTIONS (3)
  - HYDROCEPHALUS [None]
  - MALAISE [None]
  - HYPOGLYCAEMIA [None]
